FAERS Safety Report 5259850-4 (Version None)
Quarter: 2007Q1

REPORT INFORMATION
  Report Type: 
  Country: None (occurrence: None)
  Receive Date: 20070309
  Receipt Date: 20070302
  Transmission Date: 20070707
  Serious: Yes (Other)
  Sender: FDA-Public Use
  Company Number: US-ROCHE-485151

PATIENT
  Age: 20 Month
  Sex: Male

DRUGS (1)
  1. TAMIFLU [Suspect]
     Indication: DRUG USE FOR UNKNOWN INDICATION
     Dosage: PATIENT TOOK A TOTAL OF 6 OR 7 DOSES OF OSELTAMIVIR.
     Route: 065
     Dates: start: 20070215

REACTIONS (2)
  - ABNORMAL BEHAVIOUR [None]
  - SLEEP TERROR [None]
